FAERS Safety Report 5506885-X (Version None)
Quarter: 2007Q4

REPORT INFORMATION
  Report Type: 
  Country: None (occurrence: None)
  Receive Date: 20071105
  Receipt Date: 20071024
  Transmission Date: 20080405
  Serious: Yes (Other)
  Sender: FDA-Public Use
  Company Number: CN-PFIZER INC-2007090186

PATIENT

DRUGS (5)
  1. ZOLOFT [Suspect]
     Indication: COMPULSIONS
     Route: 048
  2. TRIHEXYPHENIDYL HCL [Concomitant]
     Route: 048
  3. SULPIRIDE [Concomitant]
     Route: 048
  4. VALPROATE SODIUM [Concomitant]
     Route: 048
  5. CLONAZEPAM [Concomitant]
     Route: 048

REACTIONS (1)
  - BLOOD CREATINE PHOSPHOKINASE INCREASED [None]
